FAERS Safety Report 6182925-2 (Version None)
Quarter: 2009Q2

REPORT INFORMATION
  Report Type: 
  Country: None (occurrence: None)
  Receive Date: 20090507
  Receipt Date: 20090430
  Transmission Date: 20091009
  Serious: Yes (Disabling)
  Sender: FDA-Public Use
  Company Number: BR-ELI_LILLY_AND_COMPANY-BR200905000257

PATIENT
  Age: 86 Year
  Sex: Female

DRUGS (3)
  1. FORTEO [Suspect]
     Dosage: UNK, UNKNOWN
     Route: 065
     Dates: start: 20090401
  2. INSULATARD NPH HUMAN [Concomitant]
     Dosage: UNK, UNKNOWN
     Route: 065
  3. NIFEDIPINE [Concomitant]
     Dosage: UNK, UNKNOWN
     Route: 065

REACTIONS (2)
  - ABASIA [None]
  - HYPOGLYCAEMIA [None]
